FAERS Safety Report 5194777-8 (Version None)
Quarter: 2006Q4

REPORT INFORMATION
  Report Type: 
  Country: None (occurrence: None)
  Receive Date: 20061229
  Receipt Date: 20061218
  Transmission Date: 20070319
  Serious: Yes (Hospitalization, Other)
  Sender: FDA-Public Use
  Company Number: PHBS2006NZ19742

PATIENT
  Age: 28 Year
  Sex: Male

DRUGS (1)
  1. CLOZARIL [Suspect]
     Dates: start: 20040903

REACTIONS (10)
  - CYST REMOVAL [None]
  - DIZZINESS [None]
  - HYPOKALAEMIA [None]
  - HYPOTENSION [None]
  - INTESTINAL CYST [None]
  - NEUTROPHIL COUNT DECREASED [None]
  - PROTEIN URINE ABSENT [None]
  - SOMNOLENCE [None]
  - TACHYCARDIA [None]
  - WEIGHT DECREASED [None]
